FAERS Safety Report 12874985 (Version 4)
Quarter: 2017Q1

REPORT INFORMATION
  Report Type: Spontaneous
  Country: DE (occurrence: DE)
  Receive Date: 20161023
  Receipt Date: 20170323
  Transmission Date: 20170428
  Serious: Yes (Death, Hospitalization)
  Sender: FDA-Public Use
  Company Number: DE-B.I. PHARMACEUTICALS,INC./RIDGEFIELD-2016-BI-069319

PATIENT
  Age: 80 Year
  Sex: Female
  Weight: 80 kg

DRUGS (13)
  1. QUETIAPIN [Concomitant]
     Active Substance: QUETIAPINE
     Indication: PRODUCT USED FOR UNKNOWN INDICATION
     Dosage: UNIT DOSE AND DAILY DOSE: 25 MG-25 MG-300 M
     Route: 048
  2. LORAZEPAM. [Concomitant]
     Active Substance: LORAZEPAM
     Indication: ANXIETY
     Dosage: DOSE: 0.5
     Route: 065
  3. HYDROXYZIN [Concomitant]
     Indication: ANXIETY
     Route: 048
  4. CALCIGEN D VITALKOMPLEX [Concomitant]
     Indication: OSTEOPOROSIS
     Dosage: DOSE: 1 AND DAILY DOSE: 2
     Route: 048
  5. COLECALCIFEROL [Concomitant]
     Active Substance: CHOLECALCIFEROL
     Indication: OSTEOPOROSIS
     Dosage: DOSE: 1000
     Route: 065
  6. TORASEMID [Concomitant]
     Active Substance: TORSEMIDE
     Indication: PRODUCT USED FOR UNKNOWN INDICATION
     Dosage: DOSE: 10 AND DAILY DOSE: 20
     Route: 065
  7. LORMETAZEPAM [Concomitant]
     Active Substance: LORMETAZEPAM
     Indication: ANXIETY
     Dosage: DOSE: 2 AND DAILY DOSE:2
     Route: 048
  8. BISOPROLOL [Concomitant]
     Active Substance: BISOPROLOL
     Indication: ATRIAL FIBRILLATION
     Route: 048
  9. MIRTAZAPIN SCHMELZ [Concomitant]
     Indication: PRODUCT USED FOR UNKNOWN INDICATION
     Dosage: DOSE: 30
     Route: 065
  10. QUETIAPIN [Concomitant]
     Active Substance: QUETIAPINE
     Route: 065
  11. ATARAX [Concomitant]
     Active Substance: HYDROXYZINE HYDROCHLORIDE
     Indication: PRODUCT USED FOR UNKNOWN INDICATION
     Route: 048
  12. PRADAXA [Suspect]
     Active Substance: DABIGATRAN ETEXILATE MESYLATE
     Indication: ATRIAL FIBRILLATION
     Route: 048
  13. ALPRAZOLAM 1A PHARMA [Concomitant]
     Indication: DEPRESSION
     Route: 048

REACTIONS (13)
  - Aspiration [Fatal]
  - Renal function test abnormal [Unknown]
  - Chronic kidney disease [Unknown]
  - Haematemesis [Fatal]
  - Acute respiratory distress syndrome [Fatal]
  - Cellulitis [Unknown]
  - Chronic gastritis [Unknown]
  - Shock haemorrhagic [Fatal]
  - Ventricular fibrillation [Fatal]
  - Gastritis erosive [Fatal]
  - Cardiac death [Fatal]
  - Ventricular fibrillation [Fatal]
  - Upper gastrointestinal haemorrhage [Fatal]

NARRATIVE: CASE EVENT DATE: 20161009
